FAERS Safety Report 25320619 (Version 1)
Quarter: 2025Q2

REPORT INFORMATION
  Report Type: Spontaneous
  Country: RO (occurrence: RO)
  Receive Date: 20250515
  Receipt Date: 20250515
  Transmission Date: 20250717
  Serious: Yes (Other)
  Sender: MERCK SHARP & DOHME LLC
  Company Number: RO-009507513-2283418

PATIENT
  Age: 68 Year
  Sex: Female

DRUGS (3)
  1. PEMBROLIZUMAB [Suspect]
     Active Substance: PEMBROLIZUMAB
     Indication: Cervix carcinoma
     Route: 065
     Dates: start: 202402
  2. PACLITAXEL [Suspect]
     Active Substance: PACLITAXEL
     Indication: Cervix carcinoma
     Route: 065
     Dates: start: 202402
  3. CARBOPLATIN [Suspect]
     Active Substance: CARBOPLATIN
     Indication: Cervix carcinoma
     Route: 065
     Dates: start: 202402

REACTIONS (8)
  - Neuropathy peripheral [Unknown]
  - Anaemia [Unknown]
  - Thrombocytopenia [Unknown]
  - Rash [Unknown]
  - Computerised tomogram abnormal [Unknown]
  - Pelvic pain [Unknown]
  - Heavy menstrual bleeding [Unknown]
  - Asthenia [Unknown]

NARRATIVE: CASE EVENT DATE: 20241101
